FAERS Safety Report 9679204 (Version 1)
Quarter: 2013Q4

REPORT INFORMATION
  Report Type: Spontaneous
  Country: JP (occurrence: JP)
  Receive Date: 20131108
  Receipt Date: 20131108
  Transmission Date: 20140711
  Serious: Yes (Other)
  Sender: FDA-Public Use
  Company Number: CHPA2013JP016946

PATIENT
  Age: 4 Year
  Sex: Female
  Weight: 13 kg

DRUGS (2)
  1. TAVEGYL [Suspect]
     Indication: NASOPHARYNGITIS
     Dosage: 0.7 G, QD
     Route: 048
  2. TAVEGYL [Suspect]
     Indication: OFF LABEL USE

REACTIONS (3)
  - Mental impairment [Unknown]
  - Somnolence [Unknown]
  - Overdose [Unknown]
